FAERS Safety Report 24632605 (Version 1)
Quarter: 2024Q4

REPORT INFORMATION
  Report Type: Spontaneous
  Country: US (occurrence: US)
  Receive Date: 20241118
  Receipt Date: 20241118
  Transmission Date: 20250115
  Serious: No
  Sender: DERMAVANT SCIENCES
  Company Number: US-Dermavant-001296

PATIENT
  Sex: Female

DRUGS (1)
  1. VTAMA [Suspect]
     Active Substance: TAPINAROF
     Route: 061

REACTIONS (2)
  - Vomiting [Unknown]
  - Off label use [Unknown]
